FAERS Safety Report 17093874 (Version 1)
Quarter: 2019Q4

REPORT INFORMATION
  Report Type: Spontaneous
  Country: US (occurrence: US)
  Receive Date: 20191101
  Receipt Date: 20191101
  Transmission Date: 20200122
  Serious: Yes (Hospitalization)
  Sender: FDA-Public Use
  Company Number: None

PATIENT
  Age: 67 Year
  Sex: Female
  Weight: 45.2 kg

DRUGS (5)
  1. ASMANEX [Concomitant]
     Active Substance: MOMETASONE FUROATE
  2. VITAMIN B-6 [Concomitant]
     Active Substance: PYRIDOXINE
  3. MIRALAX [Concomitant]
     Active Substance: POLYETHYLENE GLYCOL 3350
  4. EVEROLIMUS (RAD-001) [Suspect]
     Active Substance: EVEROLIMUS
     Dates: end: 20191024
  5. COLACE [Concomitant]
     Active Substance: DOCUSATE SODIUM

REACTIONS (6)
  - Metastases to liver [None]
  - Pneumonitis [None]
  - Malignant neoplasm progression [None]
  - Pleural effusion [None]
  - Dyspnoea exertional [None]
  - Metastases to bone [None]

NARRATIVE: CASE EVENT DATE: 20191024
